FAERS Safety Report 6334722-2 (Version None)
Quarter: 2009Q3

REPORT INFORMATION
  Report Type: 
  Country: None (occurrence: None)
  Receive Date: 20090831
  Receipt Date: 20090819
  Transmission Date: 20100115
  Serious: Yes (Hospitalization, Other)
  Sender: FDA-Public Use
  Company Number: JP-PFIZER INC-2009239279

PATIENT
  Age: 91 Year

DRUGS (7)
  1. ZITHROMAC SR [Suspect]
     Indication: PNEUMONIA
     Dosage: 2 G, 1X/DAY
     Route: 048
     Dates: start: 20090703, end: 20090703
  2. NORVASC [Concomitant]
     Route: 048
  3. WARFARIN [Concomitant]
     Route: 048
  4. PILSICAINIDE HYDROCHLORIDE [Concomitant]
     Route: 048
  5. PARIET [Concomitant]
     Route: 048
  6. IMIDAPRIL HYDROCHLORIDE [Concomitant]
     Route: 048
  7. FLOMOX [Concomitant]
     Indication: PNEUMONIA
     Route: 048
     Dates: start: 20090620

REACTIONS (2)
  - CARDIAC FAILURE [None]
  - OEDEMA [None]
